FAERS Safety Report 8308947-0 (Version None)
Quarter: 2012Q2

REPORT INFORMATION
  Report Type: 
  Country: None (occurrence: None)
  Receive Date: 20120424
  Receipt Date: 20120420
  Transmission Date: 20120825
  Serious: Yes (Other)
  Sender: FDA-Public Use
  Company Number: US-AMGEN-USASP2012025170

PATIENT
  Sex: Female

DRUGS (3)
  1. ABRAXANE [Concomitant]
  2. NEULASTA [Suspect]
     Indication: CHEMOTHERAPY
  3. ANTINEOPLASTIC AGENTS [Concomitant]

REACTIONS (2)
  - SPLENOMEGALY [None]
  - PLATELET COUNT DECREASED [None]
